FAERS Safety Report 22297539 (Version 3)
Quarter: 2023Q2

REPORT INFORMATION
  Report Type: Spontaneous
  Country: US (occurrence: US)
  Receive Date: 20230509
  Receipt Date: 20230626
  Transmission Date: 20230721
  Serious: Yes (Hospitalization, Other)
  Sender: FDA-Public Use
  Company Number: US-Vifor (International) Inc.-VIT-2023-03237

PATIENT
  Age: 86 Year
  Sex: Male
  Weight: 96.5 kg

DRUGS (3)
  1. MIRCERA [Suspect]
     Active Substance: METHOXY POLYETHYLENE GLYCOL-EPOETIN BETA
     Indication: Nephrogenic anaemia
     Dosage: FIRST DOSE
     Route: 040
     Dates: start: 20230424, end: 20230424
  2. MIRCERA [Suspect]
     Active Substance: METHOXY POLYETHYLENE GLYCOL-EPOETIN BETA
     Dosage: REPORTED AS NEXT DOSE
     Dates: start: 20230508
  3. VENOFER [Suspect]
     Active Substance: IRON SUCROSE
     Indication: Product used for unknown indication
     Route: 040
     Dates: start: 20230424

REACTIONS (5)
  - Agonal respiration [Unknown]
  - Pulse abnormal [Unknown]
  - Blood pressure abnormal [Unknown]
  - Unresponsive to stimuli [Unknown]
  - Anaphylactic reaction [Unknown]

NARRATIVE: CASE EVENT DATE: 20230424
